FAERS Safety Report 4956189-9 (Version None)
Quarter: 2006Q1

REPORT INFORMATION
  Report Type: 
  Country: None (occurrence: None)
  Receive Date: 20060322
  Receipt Date: 20060314
  Transmission Date: 20060701
  Serious: Yes (Other)
  Sender: FDA-Public Use
  Company Number: 2006036118

PATIENT
  Age: 74 Year
  Sex: Female
  Weight: 62.5964 kg

DRUGS (13)
  1. LYRICA [Suspect]
     Indication: NEUROPATHY PERIPHERAL
     Dosage: 150 MG (50 MG, 3 IN 1 D), ORAL
     Route: 048
     Dates: start: 20060122, end: 20060305
  2. SINGULAIR [Concomitant]
  3. AMBIEN [Concomitant]
  4. ESTRADIOL [Concomitant]
  5. PACERONE [Concomitant]
  6. ASPIRIN [Concomitant]
  7. ADVAIR DISKUS 100/50 [Concomitant]
  8. COUMADIN [Concomitant]
  9. LEXAPRO [Concomitant]
  10. HYZAAR [Concomitant]
  11. RHINOCORT AQUA (BUDESONIDE) [Concomitant]
  12. CALTRATE (CALCIUM CARBONATE) [Concomitant]
  13. CENTRUM (MINERALS NOS, VITAMINS NOS) [Concomitant]

REACTIONS (13)
  - ATRIAL FIBRILLATION [None]
  - BACTERIAL INFECTION [None]
  - CONDITION AGGRAVATED [None]
  - CONFUSIONAL STATE [None]
  - DIZZINESS [None]
  - DYSPNOEA [None]
  - HEADACHE [None]
  - INSOMNIA [None]
  - NEUROPATHY [None]
  - NEUROPATHY PERIPHERAL [None]
  - PYREXIA [None]
  - WEIGHT DECREASED [None]
  - WEIGHT INCREASED [None]
